FAERS Safety Report 14251222 (Version 1)
Quarter: 2017Q4

REPORT INFORMATION
  Report Type: Spontaneous
  Country: CO (occurrence: CO)
  Receive Date: 20171205
  Receipt Date: 20171205
  Transmission Date: 20180321
  Serious: Yes (Death)
  Sender: FDA-Public Use
  Company Number: CO-CELGENEUS-COL-20171200450

PATIENT
  Age: 48 Year
  Sex: Female

DRUGS (1)
  1. ABRAXANE [Suspect]
     Active Substance: PACLITAXEL
     Indication: LUNG NEOPLASM MALIGNANT
     Dosage: 100 MILLIGRAM
     Route: 041
     Dates: start: 20170920, end: 20171116

REACTIONS (1)
  - Death [Fatal]

NARRATIVE: CASE EVENT DATE: 20171125
